FAERS Safety Report 5494229-1 (Version None)
Quarter: 2007Q4

REPORT INFORMATION
  Report Type: 
  Country: None (occurrence: None)
  Receive Date: 20071022
  Receipt Date: 20071011
  Transmission Date: 20080405
  Serious: Yes (Hospitalization)
  Sender: FDA-Public Use
  Company Number: 2007BI016383

PATIENT
  Age: 49 Year
  Sex: Female
  Weight: 71.6683 kg

DRUGS (4)
  1. AVONEX [Suspect]
     Indication: MULTIPLE SCLEROSIS
     Dosage: 30 UG;QW;IM
     Route: 030
  2. AVONEX [Suspect]
     Indication: MULTIPLE SCLEROSIS
     Dosage: 30 UG;QW;IM
     Route: 030
  3. AVONEX [Suspect]
     Indication: MULTIPLE SCLEROSIS
     Dosage: 30 UG;QW;IM
     Route: 030
     Dates: start: 20070301
  4. TYLENOL (CAPLET) [Concomitant]

REACTIONS (7)
  - FALL [None]
  - INFLUENZA LIKE ILLNESS [None]
  - INJECTION SITE HAEMORRHAGE [None]
  - MEMORY IMPAIRMENT [None]
  - MULTIPLE SCLEROSIS RELAPSE [None]
  - PYREXIA [None]
  - RIB FRACTURE [None]
